FAERS Safety Report 24951760 (Version 10)
Quarter: 2025Q3

REPORT INFORMATION
  Report Type: Spontaneous
  Country: US (occurrence: US)
  Receive Date: 20250210
  Receipt Date: 20250730
  Transmission Date: 20251020
  Serious: No
  Sender: PFIZER
  Company Number: US-PFIZER INC-202400333535

PATIENT
  Age: 69 Year
  Sex: Female

DRUGS (5)
  1. TUKYSA [Suspect]
     Active Substance: TUCATINIB
     Route: 048
  2. TUKYSA [Suspect]
     Active Substance: TUCATINIB
     Dosage: 150 MG, TWO TABLETS EVERY TWELVE HOURS
     Route: 048
  3. TUKYSA [Suspect]
     Active Substance: TUCATINIB
     Route: 048
  4. TUKYSA [Suspect]
     Active Substance: TUCATINIB
     Dosage: 150MG; 2 TABLETS TWICE DAILY
  5. CAPECITABINE [Concomitant]
     Active Substance: CAPECITABINE

REACTIONS (7)
  - Dyspnoea [Not Recovered/Not Resolved]
  - Malaise [Unknown]
  - Cough [Unknown]
  - Weight decreased [Unknown]
  - Illness [Unknown]
  - Overdose [Unknown]
  - Off label use [Unknown]
